FAERS Safety Report 14664654 (Version 1)
Quarter: 2018Q1

REPORT INFORMATION
  Report Type: Spontaneous
  Country: GB (occurrence: GB)
  Receive Date: 20180321
  Receipt Date: 20180321
  Transmission Date: 20180509
  Serious: Yes (Other)
  Sender: FDA-Public Use
  Company Number: GB-TEVA-2018-GB-871325

PATIENT
  Age: 86 Year
  Sex: Female
  Weight: 64 kg

DRUGS (10)
  1. ISPAGHULA EXTRACT\PSYLLIUM [Concomitant]
     Active Substance: HERBALS\PLANTAGO OVATA SEED\PLANTAGO SEED
     Indication: CONSTIPATION
     Dosage: 2 DOSAGE FORMS DAILY;
  2. RAMIPRIL. [Suspect]
     Active Substance: RAMIPRIL
     Route: 065
  3. PARACETAMOL [Concomitant]
     Active Substance: ACETAMINOPHEN
     Dosage: TAKE 1 OR 2, 4 TIMES/DAY
  4. BISOPROLOL [Concomitant]
     Active Substance: BISOPROLOL
     Dosage: 1 DOSAGE FORMS DAILY; (IN ADDITION TO 5MG TABLET)
  5. OMEPRAZOLE. [Concomitant]
     Active Substance: OMEPRAZOLE
     Dosage: 1 DOSAGE FORMS DAILY;
  6. EDOXABAN [Concomitant]
     Active Substance: EDOXABAN TOSYLATE
     Indication: CEREBROVASCULAR ACCIDENT PROPHYLAXIS
     Dosage: 1 DOSAGE FORMS DAILY;
  7. FUROSEMIDE. [Concomitant]
     Active Substance: FUROSEMIDE
     Dosage: 1 DOSAGE FORMS DAILY; EACH MORNING (IN ADDITION TO 40MG DOSE)
  8. WARFARIN SODIUM. [Concomitant]
     Active Substance: WARFARIN SODIUM
     Dosage: TAKE AS DIRECTED
  9. FOLIC ACID. [Concomitant]
     Active Substance: FOLIC ACID
     Dosage: 1 DOSAGE FORMS DAILY;
  10. GAVISCON ADVANCE [Concomitant]
     Active Substance: POTASSIUM BICARBONATE\SODIUM ALGINATE
     Dosage: 5ML - 10ML 4 TIMES/DAY

REACTIONS (5)
  - Malaise [Unknown]
  - Dyspnoea [Unknown]
  - Muscular weakness [Recovering/Resolving]
  - Asthenia [Unknown]
  - Insomnia [Recovered/Resolved]
